FAERS Safety Report 4323153-2 (Version None)
Quarter: 2004Q1

REPORT INFORMATION
  Report Type: 
  Country: None (occurrence: None)
  Receive Date: 20040322
  Receipt Date: 20040309
  Transmission Date: 20041129
  Serious: Yes (Death)
  Sender: FDA-Public Use
  Company Number: US-JNJFOC-20040102805

PATIENT
  Age: 68 Year
  Sex: Female

DRUGS (3)
  1. DURAGESIC [Suspect]
     Indication: CANCER PAIN
     Dosage: TRANSDERMAL
     Route: 062
     Dates: end: 20031201
  2. MORPHINE SULFATE [Concomitant]
  3. MORPHINE SULFATE EXTENDED RELEASE (MORPHINE SULFATE) [Concomitant]

REACTIONS (1)
  - DEATH [None]
